FAERS Safety Report 7119123-1 (Version None)
Quarter: 2010Q4

REPORT INFORMATION
  Report Type: 
  Country: None (occurrence: None)
  Receive Date: 20101123
  Receipt Date: 20091228
  Transmission Date: 20110411
  Serious: No
  Sender: FDA-Public Use
  Company Number: US-MYLANLABS-2009S1015643

PATIENT
  Age: 68 Year
  Sex: Female

DRUGS (14)
  1. AMLODIPINE BESYLATE [Suspect]
     Indication: BLOOD PRESSURE INCREASED
     Route: 048
     Dates: start: 20090725, end: 20090731
  2. AMLODIPINE BESYLATE [Suspect]
     Dosage: 1/2 10MG TABLET
     Route: 048
     Dates: start: 20090801, end: 20090817
  3. THEOPHYLLINE [Concomitant]
  4. SINGULAIR [Concomitant]
  5. LIPITOR [Concomitant]
  6. CARDIZEM [Concomitant]
  7. VASOTEC [Concomitant]
  8. CATAPRES [Concomitant]
  9. FOSAMAX [Concomitant]
  10. ASPIRIN [Concomitant]
     Dosage: 2- 81MG SAFETY COATED ASA DAILY
  11. PROVENTIL [Concomitant]
  12. ATROVENT [Concomitant]
  13. ADVAIR DISKUS 100/50 [Concomitant]
  14. SPIRIVA [Concomitant]

REACTIONS (9)
  - ARTHRALGIA [None]
  - BLISTER [None]
  - GAIT DISTURBANCE [None]
  - OEDEMA PERIPHERAL [None]
  - PRURITUS [None]
  - RASH [None]
  - SKIN DISCOLOURATION [None]
  - SKIN HYPERTROPHY [None]
  - WEIGHT INCREASED [None]
